FAERS Safety Report 7907462-3 (Version None)
Quarter: 2011Q4

REPORT INFORMATION
  Report Type: 
  Country: None (occurrence: None)
  Receive Date: 20111110
  Receipt Date: 20111109
  Transmission Date: 20120403
  Serious: Yes (Hospitalization)
  Sender: FDA-Public Use
  Company Number: CH-BAYER-2011-108279

PATIENT
  Age: 79 Year
  Sex: Female

DRUGS (9)
  1. ESCITALOPRAM [Concomitant]
     Dosage: 2 MMOL, BID
     Route: 048
  2. NEXIUM [Concomitant]
     Dosage: 20 MG, QD
     Route: 048
  3. LAMICTAL [Concomitant]
     Dosage: 100 MG, BID
     Route: 048
  4. ROCEPHIN [Suspect]
     Indication: SEPSIS
     Dosage: 2 G, QD
     Route: 042
     Dates: start: 20111014, end: 20111015
  5. METOPROLOL SUCCINATE [Concomitant]
     Dosage: 50 MG, BID
     Route: 048
  6. NEO-MERCAZOLE TAB [Concomitant]
     Dosage: 5 MG, BID
     Route: 048
  7. INVANZ [Suspect]
     Indication: SEPSIS
     Dosage: 1 G, QD
     Route: 040
     Dates: start: 20111016, end: 20111018
  8. MOTILIUM [Concomitant]
     Dosage: 1 DF, TID
     Route: 048
  9. CIPROFLAXACIN [Suspect]
     Indication: SEPSIS
     Dosage: 1 G, BID
     Route: 048
     Dates: start: 20111014, end: 20111016

REACTIONS (3)
  - HYPERBILIRUBINAEMIA [None]
  - HEPATOCELLULAR INJURY [None]
  - CHOLECYSTITIS [None]
